FAERS Safety Report 5585815-9 (Version None)
Quarter: 2007Q4

REPORT INFORMATION
  Report Type: 
  Country: None (occurrence: None)
  Receive Date: 20071205
  Receipt Date: 20070209
  Transmission Date: 20080405
  Serious: Yes (Hospitalization, Other)
  Sender: FDA-Public Use
  Company Number: HQWYE562213FEB07

PATIENT
  Age: 32 Year
  Sex: Female
  Weight: 52.21 kg

DRUGS (2)
  1. EFFEXOR XR [Suspect]
     Indication: DEPRESSION
     Dosage: 75 MG, 1X PER 1 DAY, ORAL ; 37.5 MG 1X PER 1 DAY, ORAL
     Route: 048
     Dates: start: 20061001, end: 20061101
  2. EFFEXOR XR [Suspect]
     Indication: DEPRESSION
     Dosage: 75 MG, 1X PER 1 DAY, ORAL ; 37.5 MG 1X PER 1 DAY, ORAL
     Route: 048
     Dates: start: 20061101

REACTIONS (3)
  - ELECTROCARDIOGRAM ABNORMAL [None]
  - MANIA [None]
  - URTICARIA [None]
